FAERS Safety Report 13700773 (Version 3)
Quarter: 2017Q3

REPORT INFORMATION
  Report Type: Spontaneous
  Country: JP (occurrence: JP)
  Receive Date: 20170629
  Receipt Date: 20170905
  Transmission Date: 20171127
  Serious: Yes (Hospitalization, Other)
  Sender: FDA-Public Use
  Company Number: JP-PFIZER INC-2017280959

PATIENT
  Age: 90 Year
  Sex: Female
  Weight: 35 kg

DRUGS (7)
  1. DONEPEZIL HCL [Suspect]
     Active Substance: DONEPEZIL HYDROCHLORIDE
     Indication: DEMENTIA
     Dosage: 5 MG, 1X/DAY, EVERY MORNING
     Route: 048
  2. LIXIANA [Suspect]
     Active Substance: EDOXABAN TOSYLATE
     Indication: CEREBRAL INFARCTION
     Dosage: 30 MG, 1X/DAY, EVERY MORNING
     Route: 048
     Dates: start: 20170516
  3. LIXIANA [Suspect]
     Active Substance: EDOXABAN TOSYLATE
     Indication: EMBOLIC STROKE
  4. BELSOMRA [Suspect]
     Active Substance: SUVOREXANT
     Indication: SLEEP DISORDER
     Dosage: 15 MG, 1X/DAY, AT NIGHT
     Route: 048
  5. ATENOLOL. [Suspect]
     Active Substance: ATENOLOL
     Indication: ANGINA PECTORIS
     Dosage: 25 MG, 1X/DAY, EVERY MORNING
     Route: 048
  6. ROZEREM [Suspect]
     Active Substance: RAMELTEON
     Indication: SLEEP DISORDER
     Dosage: 8 MG, 1X/DAY, AT NIGHT
     Route: 048
  7. NEXIUM [Suspect]
     Active Substance: ESOMEPRAZOLE MAGNESIUM
     Indication: GASTROOESOPHAGEAL REFLUX DISEASE
     Dosage: 20 MG, 1X/DAY, EVERY MORNING
     Route: 048

REACTIONS (4)
  - Anaemia [Not Recovered/Not Resolved]
  - Large intestine polyp [Unknown]
  - Small intestinal haemorrhage [Unknown]
  - Colon cancer [Not Recovered/Not Resolved]

NARRATIVE: CASE EVENT DATE: 20170531
